FAERS Safety Report 25853995 (Version 1)
Quarter: 2025Q3

REPORT INFORMATION
  Report Type: Report from Study
  Country: KR (occurrence: KR)
  Receive Date: 20250926
  Receipt Date: 20250926
  Transmission Date: 20251021
  Serious: Yes (Hospitalization)
  Sender: MYLAN
  Company Number: KR-MYLANLABS-2025M1081662

PATIENT
  Age: 55 Year
  Sex: Male

DRUGS (52)
  1. LYRICA [Suspect]
     Active Substance: PREGABALIN
     Indication: Product used for unknown indication
     Dosage: 150 MILLIGRAM, BID
     Dates: start: 20210303, end: 20210414
  2. LYRICA [Suspect]
     Active Substance: PREGABALIN
     Dosage: 150 MILLIGRAM, BID
     Dates: start: 20210303, end: 20210414
  3. LYRICA [Suspect]
     Active Substance: PREGABALIN
     Dosage: 150 MILLIGRAM, BID
     Route: 065
     Dates: start: 20210303, end: 20210414
  4. LYRICA [Suspect]
     Active Substance: PREGABALIN
     Dosage: 150 MILLIGRAM, BID
     Route: 065
     Dates: start: 20210303, end: 20210414
  5. LYRICA [Suspect]
     Active Substance: PREGABALIN
  6. LYRICA [Suspect]
     Active Substance: PREGABALIN
  7. LYRICA [Suspect]
     Active Substance: PREGABALIN
     Route: 065
  8. LYRICA [Suspect]
     Active Substance: PREGABALIN
     Route: 065
  9. GLIMEPIRIDE [Concomitant]
     Active Substance: GLIMEPIRIDE
     Dosage: 1 DOSAGE FORM, BID
     Dates: start: 20211020
  10. GLIMEPIRIDE [Concomitant]
     Active Substance: GLIMEPIRIDE
     Dosage: 1 DOSAGE FORM, BID
     Route: 048
     Dates: start: 20211020
  11. GLIMEPIRIDE [Concomitant]
     Active Substance: GLIMEPIRIDE
     Dosage: 1 DOSAGE FORM, BID
     Route: 048
     Dates: start: 20211020
  12. GLIMEPIRIDE [Concomitant]
     Active Substance: GLIMEPIRIDE
     Dosage: 1 DOSAGE FORM, BID
     Dates: start: 20211020
  13. PREGABALIN [Concomitant]
     Active Substance: PREGABALIN
     Dosage: 75 MILLIGRAM, BID
     Dates: start: 20201231, end: 20210110
  14. PREGABALIN [Concomitant]
     Active Substance: PREGABALIN
     Dosage: 75 MILLIGRAM, BID
     Route: 048
     Dates: start: 20201231, end: 20210110
  15. PREGABALIN [Concomitant]
     Active Substance: PREGABALIN
     Dosage: 75 MILLIGRAM, BID
     Route: 048
     Dates: start: 20201231, end: 20210110
  16. PREGABALIN [Concomitant]
     Active Substance: PREGABALIN
     Dosage: 75 MILLIGRAM, BID
     Dates: start: 20201231, end: 20210110
  17. BILBERRY [Concomitant]
     Active Substance: BILBERRY
     Indication: Diabetic retinopathy
     Dosage: 170 MILLIGRAM, BID (DRIED EXTRACT)
     Dates: start: 20201231, end: 20210119
  18. BILBERRY [Concomitant]
     Active Substance: BILBERRY
     Dosage: 170 MILLIGRAM, BID (DRIED EXTRACT)
     Route: 048
     Dates: start: 20201231, end: 20210119
  19. BILBERRY [Concomitant]
     Active Substance: BILBERRY
     Dosage: 170 MILLIGRAM, BID (DRIED EXTRACT)
     Route: 048
     Dates: start: 20201231, end: 20210119
  20. BILBERRY [Concomitant]
     Active Substance: BILBERRY
     Dosage: 170 MILLIGRAM, BID (DRIED EXTRACT)
     Dates: start: 20201231, end: 20210119
  21. ACECLOFENAC [Concomitant]
     Active Substance: ACECLOFENAC
     Indication: Epicondylitis
     Dosage: 100 MILLIGRAM, BID
     Dates: start: 20201231, end: 20210107
  22. ACECLOFENAC [Concomitant]
     Active Substance: ACECLOFENAC
     Dosage: 100 MILLIGRAM, BID
     Route: 048
     Dates: start: 20201231, end: 20210107
  23. ACECLOFENAC [Concomitant]
     Active Substance: ACECLOFENAC
     Dosage: 100 MILLIGRAM, BID
     Route: 048
     Dates: start: 20201231, end: 20210107
  24. ACECLOFENAC [Concomitant]
     Active Substance: ACECLOFENAC
     Dosage: 100 MILLIGRAM, BID
     Dates: start: 20201231, end: 20210107
  25. BROMELAINS [Concomitant]
     Active Substance: BROMELAINS
     Indication: Epicondylitis
     Dosage: 100 MILLIGRAM, BID
     Dates: start: 20201231, end: 20210107
  26. BROMELAINS [Concomitant]
     Active Substance: BROMELAINS
     Dosage: 100 MILLIGRAM, BID
     Route: 048
     Dates: start: 20201231, end: 20210107
  27. BROMELAINS [Concomitant]
     Active Substance: BROMELAINS
     Dosage: 100 MILLIGRAM, BID
     Route: 048
     Dates: start: 20201231, end: 20210107
  28. BROMELAINS [Concomitant]
     Active Substance: BROMELAINS
     Dosage: 100 MILLIGRAM, BID
     Dates: start: 20201231, end: 20210107
  29. ROXATIDINE ACETATE HYDROCHLORIDE [Concomitant]
     Active Substance: ROXATIDINE ACETATE HYDROCHLORIDE
     Indication: Gastrointestinal disorder prophylaxis
     Dosage: 75 MILLIGRAM, BID
     Dates: start: 20201231, end: 20210107
  30. ROXATIDINE ACETATE HYDROCHLORIDE [Concomitant]
     Active Substance: ROXATIDINE ACETATE HYDROCHLORIDE
     Dosage: 75 MILLIGRAM, BID
     Route: 048
     Dates: start: 20201231, end: 20210107
  31. ROXATIDINE ACETATE HYDROCHLORIDE [Concomitant]
     Active Substance: ROXATIDINE ACETATE HYDROCHLORIDE
     Dosage: 75 MILLIGRAM, BID
     Route: 048
     Dates: start: 20201231, end: 20210107
  32. ROXATIDINE ACETATE HYDROCHLORIDE [Concomitant]
     Active Substance: ROXATIDINE ACETATE HYDROCHLORIDE
     Dosage: 75 MILLIGRAM, BID
     Dates: start: 20201231, end: 20210107
  33. METFORMIN HYDROCHLORIDE [Concomitant]
     Active Substance: METFORMIN HYDROCHLORIDE
     Dosage: 500 MILLIGRAM, BID
     Dates: start: 20201231, end: 20210119
  34. METFORMIN HYDROCHLORIDE [Concomitant]
     Active Substance: METFORMIN HYDROCHLORIDE
     Dosage: 500 MILLIGRAM, BID
     Route: 048
     Dates: start: 20201231, end: 20210119
  35. METFORMIN HYDROCHLORIDE [Concomitant]
     Active Substance: METFORMIN HYDROCHLORIDE
     Dosage: 500 MILLIGRAM, BID
     Route: 048
     Dates: start: 20201231, end: 20210119
  36. METFORMIN HYDROCHLORIDE [Concomitant]
     Active Substance: METFORMIN HYDROCHLORIDE
     Dosage: 500 MILLIGRAM, BID
     Dates: start: 20201231, end: 20210119
  37. METFORMIN HYDROCHLORIDE [Concomitant]
     Active Substance: METFORMIN HYDROCHLORIDE
     Dosage: 1 DOSAGE FORM, BID
     Dates: start: 20211020
  38. METFORMIN HYDROCHLORIDE [Concomitant]
     Active Substance: METFORMIN HYDROCHLORIDE
     Dosage: 1 DOSAGE FORM, BID
     Route: 048
     Dates: start: 20211020
  39. METFORMIN HYDROCHLORIDE [Concomitant]
     Active Substance: METFORMIN HYDROCHLORIDE
     Dosage: 1 DOSAGE FORM, BID
     Dates: start: 20211020
  40. METFORMIN HYDROCHLORIDE [Concomitant]
     Active Substance: METFORMIN HYDROCHLORIDE
     Dosage: 1 DOSAGE FORM, BID
     Route: 048
     Dates: start: 20211020
  41. METFORMIN HYDROCHLORIDE [Concomitant]
     Active Substance: METFORMIN HYDROCHLORIDE
     Dosage: 500 MILLIGRAM, BID
     Route: 048
     Dates: start: 20211020
  42. METFORMIN HYDROCHLORIDE [Concomitant]
     Active Substance: METFORMIN HYDROCHLORIDE
     Dosage: 500 MILLIGRAM, BID
     Route: 048
     Dates: start: 20211020
  43. METFORMIN HYDROCHLORIDE [Concomitant]
     Active Substance: METFORMIN HYDROCHLORIDE
     Dosage: 500 MILLIGRAM, BID
     Dates: start: 20211020
  44. METFORMIN HYDROCHLORIDE [Concomitant]
     Active Substance: METFORMIN HYDROCHLORIDE
     Dosage: 500 MILLIGRAM, BID
     Dates: start: 20211020
  45. REBAMIPIDE [Concomitant]
     Active Substance: REBAMIPIDE
     Indication: Gastrointestinal disorder prophylaxis
     Dosage: 100 MILLIGRAM, BID
     Dates: start: 20211029, end: 20211031
  46. REBAMIPIDE [Concomitant]
     Active Substance: REBAMIPIDE
     Dosage: 100 MILLIGRAM, BID
     Dates: start: 20211029, end: 20211031
  47. REBAMIPIDE [Concomitant]
     Active Substance: REBAMIPIDE
     Dosage: 100 MILLIGRAM, BID
     Route: 048
     Dates: start: 20211029, end: 20211031
  48. REBAMIPIDE [Concomitant]
     Active Substance: REBAMIPIDE
     Dosage: 100 MILLIGRAM, BID
     Route: 048
     Dates: start: 20211029, end: 20211031
  49. REBAMIPIDE [Concomitant]
     Active Substance: REBAMIPIDE
     Dosage: 100 MILLIGRAM, BID
     Dates: start: 20210201, end: 20210315
  50. REBAMIPIDE [Concomitant]
     Active Substance: REBAMIPIDE
     Dosage: 100 MILLIGRAM, BID
     Dates: start: 20210201, end: 20210315
  51. REBAMIPIDE [Concomitant]
     Active Substance: REBAMIPIDE
     Dosage: 100 MILLIGRAM, BID
     Route: 048
     Dates: start: 20210201, end: 20210315
  52. REBAMIPIDE [Concomitant]
     Active Substance: REBAMIPIDE
     Dosage: 100 MILLIGRAM, BID
     Route: 048
     Dates: start: 20210201, end: 20210315

REACTIONS (1)
  - Spinal laminectomy [Recovered/Resolved]

NARRATIVE: CASE EVENT DATE: 20210129
